FAERS Safety Report 5683890-4 (Version None)
Quarter: 2008Q1

REPORT INFORMATION
  Report Type: 
  Country: None (occurrence: None)
  Receive Date: 20080327
  Receipt Date: 20080327
  Transmission Date: 20080703
  Serious: No
  Sender: FDA-Public Use
  Company Number: None

PATIENT
  Sex: Male

DRUGS (1)
  1. TPN [Suspect]
     Dosage: 2400 ML  IV
     Route: 042
     Dates: start: 20080324, end: 20080325

REACTIONS (4)
  - BLOOD POTASSIUM INCREASED [None]
  - DRUG DISPENSING ERROR [None]
  - INCORRECT DOSE ADMINISTERED [None]
  - MEDICATION ERROR [None]
